FAERS Safety Report 8144481 (Version 2)
Quarter: 2012Q4

REPORT INFORMATION
  Report Type: 
  Country: US (occurrence: US)
  Receive Date: 20110920
  Receipt Date: 20120830
  Transmission Date: 20130627
  Serious: Yes (Death, Hospitalization)
  Sender: FDA-Public Use
  Company Number: US-GLAXOSMITHKLINE-A0927173A

PATIENT
  Age: 69 Year
  Sex: Male

DRUGS (1)
  1. AVANDIA [Suspect]
     Indication: DIABETES MELLITUS
     Dosage: 8MG Per day
     Route: 048
     Dates: start: 2001

REACTIONS (4)
  - Renal failure chronic [Fatal]
  - Cerebrovascular accident [Fatal]
  - Cardiac arrest [Unknown]
  - Cardiac disorder [Unknown]
